FAERS Safety Report 16464921 (Version 1)
Quarter: 2019Q2

REPORT INFORMATION
  Report Type: Report from Study
  Country: CA (occurrence: CA)
  Receive Date: 20190621
  Receipt Date: 20190621
  Transmission Date: 20190711
  Serious: Yes (Other)
  Sender: FDA-Public Use
  Company Number: CA-UCBSA-2018038521

PATIENT
  Age: 26 Year
  Sex: Female
  Weight: 54.42 kg

DRUGS (3)
  1. PLAQUENIL [Concomitant]
     Active Substance: HYDROXYCHLOROQUINE SULFATE
     Indication: ANKYLOSING SPONDYLITIS
     Dosage: 400 MG, 2X/DAY (BID)
  2. CERTOLIZUMAB PEGOL [Suspect]
     Active Substance: CERTOLIZUMAB PEGOL
     Indication: ANKYLOSING SPONDYLITIS
     Dosage: 400 MG, EV 2 WEEKS(QOW)
     Route: 058
     Dates: start: 20180706, end: 20180803
  3. CERTOLIZUMAB PEGOL [Suspect]
     Active Substance: CERTOLIZUMAB PEGOL
     Dosage: 200 MG, EV 2 WEEKS(QOW)
     Route: 058
     Dates: start: 20180817

REACTIONS (10)
  - Injection site bruising [Unknown]
  - Lymphadenopathy [Not Recovered/Not Resolved]
  - Maternal exposure during breast feeding [Unknown]
  - Injection site erythema [Unknown]
  - Injection site swelling [Unknown]
  - Decreased appetite [Unknown]
  - Lymph node pain [Not Recovered/Not Resolved]
  - Maternal exposure before pregnancy [Unknown]
  - Ankylosing spondylitis [Unknown]
  - Unevaluable event [Unknown]

NARRATIVE: CASE EVENT DATE: 2018
